FAERS Safety Report 7326588-9 (Version None)
Quarter: 2011Q1

REPORT INFORMATION
  Report Type: 
  Country: None (occurrence: None)
  Receive Date: 20110302
  Receipt Date: 20110228
  Transmission Date: 20110831
  Serious: Yes (Hospitalization)
  Sender: FDA-Public Use
  Company Number: FR-MERCK-1010FRA00088

PATIENT
  Age: 67 Year
  Sex: Female

DRUGS (6)
  1. POSACONAZOLE [Suspect]
     Indication: PROPHYLAXIS
     Route: 048
     Dates: start: 20100911, end: 20100924
  2. PIPERACILLIN SODIUM AND TAZOBACTAM SODIUM [Concomitant]
     Indication: PROPHYLAXIS
     Route: 051
     Dates: start: 20100910, end: 20100916
  3. POSACONAZOLE [Suspect]
     Indication: INFECTION
     Route: 048
     Dates: start: 20100911, end: 20100924
  4. PRIMAXIN [Suspect]
     Indication: INFECTION
     Route: 042
     Dates: start: 20100916, end: 20100924
  5. PRIMAXIN [Suspect]
     Indication: PROPHYLAXIS
     Route: 042
     Dates: start: 20100916, end: 20100924
  6. PIPERACILLIN SODIUM AND TAZOBACTAM SODIUM [Concomitant]
     Indication: INFECTION
     Route: 051
     Dates: start: 20100910, end: 20100916

REACTIONS (1)
  - CYTOLYTIC HEPATITIS [None]
